FAERS Safety Report 5109749-9 (Version None)
Quarter: 2006Q3

REPORT INFORMATION
  Report Type: 
  Country: None (occurrence: None)
  Receive Date: 20060918
  Receipt Date: 20060905
  Transmission Date: 20061208
  Serious: Yes (Hospitalization)
  Sender: FDA-Public Use
  Company Number: BR-2006-019956

PATIENT
  Age: 30 Year
  Sex: Male
  Weight: 75 kg

DRUGS (2)
  1. BETAFERON [Suspect]
     Indication: MULTIPLE SCLEROSIS
     Dosage: SUBCUTANEOUS
     Route: 058
     Dates: start: 20050401
  2. CORTICOSTEROIDS [Concomitant]

REACTIONS (4)
  - BALANCE DISORDER [None]
  - DIPLOPIA [None]
  - DYSPHASIA [None]
  - HYPOAESTHESIA [None]
